FAERS Safety Report 18059440 (Version 1)
Quarter: 2020Q3

REPORT INFORMATION
  Report Type: Spontaneous
  Country: US (occurrence: US)
  Receive Date: 20200723
  Receipt Date: 20200723
  Transmission Date: 20201103
  Serious: No
  Sender: FDA-Public Use
  Company Number: US-PFIZER INC-2019470160

PATIENT
  Age: 72 Year
  Sex: Female

DRUGS (2)
  1. IBRANCE [Suspect]
     Active Substance: PALBOCICLIB
     Indication: BREAST CANCER METASTATIC
     Dosage: 125 MG, DAILY (IBRANCE 25 MG 28?DAY SUPPLY)
     Route: 048
  2. IBRANCE [Suspect]
     Active Substance: PALBOCICLIB
     Dosage: 25 MG, DAILY, (25 MG DOSAGE FORM REQUESTED; TAKE 1 CAPSULE BY MOUTH DAILY)
     Route: 048

REACTIONS (1)
  - Hypoacusis [Unknown]
